FAERS Safety Report 15206706 (Version 2)
Quarter: 2018Q3

REPORT INFORMATION
  Report Type: Spontaneous
  Country: US (occurrence: US)
  Receive Date: 20180727
  Receipt Date: 20180814
  Transmission Date: 20181010
  Serious: Yes (Death, Hospitalization)
  Sender: FDA-Public Use
  Company Number: US-JNJFOC-20180718229

PATIENT
  Age: 64 Year
  Sex: Female

DRUGS (2)
  1. XARELTO [Suspect]
     Active Substance: RIVAROXABAN
     Indication: DEEP VEIN THROMBOSIS
     Route: 048
     Dates: start: 20160813, end: 20160815
  2. XARELTO [Suspect]
     Active Substance: RIVAROXABAN
     Indication: PULMONARY EMBOLISM
     Route: 048
     Dates: start: 20160813, end: 20160815

REACTIONS (7)
  - Retroperitoneal haematoma [Unknown]
  - Sepsis [Fatal]
  - Pyelonephritis [Fatal]
  - Shock [Unknown]
  - Acute respiratory failure [Unknown]
  - Cardiac failure congestive [Fatal]
  - Alpha haemolytic streptococcal infection [Fatal]

NARRATIVE: CASE EVENT DATE: 201608
